FAERS Safety Report 9796790 (Version 3)
Quarter: 2014Q2

REPORT INFORMATION
  Report Type: Spontaneous
  Country: JP (occurrence: JP)
  Receive Date: 20140103
  Receipt Date: 20140401
  Transmission Date: 20141212
  Serious: Yes (Hospitalization)
  Sender: FDA-Public Use
  Company Number: JP-OTSUKA-JP-2013-16275

PATIENT
  Age: 22 Year
  Sex: Male

DRUGS (6)
  1. SAMSCA [Suspect]
     Indication: CARDIAC FAILURE
     Dosage: 7.5 MG MILLIGRAM(S), DAILY DOSE
     Route: 048
     Dates: start: 20131122, end: 20131129
  2. SAMSCA [Suspect]
     Dosage: 15 MG MILLIGRAM(S), DAILY DOSE
     Route: 048
     Dates: start: 20131130, end: 20131206
  3. DIART [Concomitant]
     Dosage: 60 MG MILLIGRAM(S), DAILY DOSE
     Route: 048
     Dates: start: 20131111
  4. ALDACTONE A [Concomitant]
     Dosage: 25 MG MILLIGRAM(S), DAILY DOSE
     Route: 048
     Dates: start: 20131111
  5. HANP [Concomitant]
     Dosage: 0.07 UG/KG/MIN, DAILY DOSE
     Route: 042
     Dates: start: 20131112, end: 20131121
  6. HANP [Concomitant]
     Dosage: 0.07 UG/KG/MIN, DAILY DOSE
     Route: 042
     Dates: start: 20131204, end: 20131209

REACTIONS (1)
  - Hepatic function abnormal [Recovered/Resolved]
